FAERS Safety Report 8381769-0 (Version None)
Quarter: 2012Q2

REPORT INFORMATION
  Report Type: 
  Country: None (occurrence: None)
  Receive Date: 20120524
  Receipt Date: 20120510
  Transmission Date: 20120825
  Serious: Yes (Other)
  Sender: FDA-Public Use
  Company Number: DE-RANBAXY-2012RR-56207

PATIENT
  Sex: Male
  Weight: 125 kg

DRUGS (1)
  1. ATORVASTATIN CALCIUM [Suspect]
     Indication: HYPERLIPIDAEMIA
     Dosage: 10 MG/DAY
     Route: 048
     Dates: start: 20120314, end: 20120317

REACTIONS (2)
  - PALPITATIONS [None]
  - INSOMNIA [None]
